FAERS Safety Report 6130774-3 (Version None)
Quarter: 2009Q1

REPORT INFORMATION
  Report Type: 
  Country: None (occurrence: None)
  Receive Date: 20090325
  Receipt Date: 20090318
  Transmission Date: 20090719
  Serious: Yes (Hospitalization)
  Sender: FDA-Public Use
  Company Number: CA-ASTRAZENECA-2009UW05083

PATIENT
  Sex: Female

DRUGS (3)
  1. CRESTOR [Suspect]
     Indication: INFARCTION
     Route: 048
     Dates: start: 20060801
  2. NOVO-METOPROL [Concomitant]
  3. ASPIRIN [Concomitant]

REACTIONS (3)
  - DYSPEPSIA [None]
  - GASTROINTESTINAL HAEMORRHAGE [None]
  - TYPE 2 DIABETES MELLITUS [None]
